FAERS Safety Report 19402088 (Version 2)
Quarter: 2021Q2

REPORT INFORMATION
  Report Type: Spontaneous
  Country: HR (occurrence: HR)
  Receive Date: 20210610
  Receipt Date: 20210619
  Transmission Date: 20210717
  Serious: Yes (Death, Hospitalization, Other)
  Sender: FDA-Public Use
  Company Number: NVSC2021HR130688

PATIENT

DRUGS (3)
  1. SECUKINUMAB. [Suspect]
     Active Substance: SECUKINUMAB
     Indication: ANKYLOSING SPONDYLITIS
  2. SECUKINUMAB. [Suspect]
     Active Substance: SECUKINUMAB
     Indication: AXIAL SPONDYLOARTHRITIS
     Dosage: UNK
     Route: 065
  3. SECUKINUMAB. [Suspect]
     Active Substance: SECUKINUMAB
     Indication: PSORIATIC ARTHROPATHY

REACTIONS (6)
  - Hypoaesthesia [Unknown]
  - Joint dislocation [Unknown]
  - Hip fracture [Unknown]
  - Nervous system disorder [Fatal]
  - Meningioma [Unknown]
  - Gait disturbance [Unknown]
